FAERS Safety Report 5315388-7 (Version None)
Quarter: 2007Q2

REPORT INFORMATION
  Report Type: 
  Country: None (occurrence: None)
  Receive Date: 20070503
  Receipt Date: 20070426
  Transmission Date: 20071010
  Serious: Yes (Other)
  Sender: FDA-Public Use
  Company Number: PHEH2007US04420

PATIENT
  Age: 51 Year
  Sex: Female

DRUGS (9)
  1. ZELNORM [Suspect]
     Indication: IMPAIRED GASTRIC EMPTYING
     Dosage: 6 MG, BID
     Route: 048
     Dates: start: 20061127, end: 20070403
  2. ZOCOR [Concomitant]
  3. ANTIDIABETICS [Concomitant]
  4. IMDUR [Concomitant]
  5. COUMADIN [Concomitant]
  6. SINGULAIR [Concomitant]
  7. ADVAIR DISKUS 100/50 [Concomitant]
  8. AMBIEN [Concomitant]
  9. ALPRAZOLAM [Concomitant]

REACTIONS (6)
  - BLINDNESS [None]
  - CEREBROVASCULAR ACCIDENT [None]
  - DIPLOPIA [None]
  - HEMIPARESIS [None]
  - SPEECH DISORDER [None]
  - WALKING AID USER [None]
